FAERS Safety Report 7627659-X (Version None)
Quarter: 2011Q3

REPORT INFORMATION
  Report Type: 
  Country: None (occurrence: None)
  Receive Date: 20110721
  Receipt Date: 20110711
  Transmission Date: 20111222
  Serious: Yes (Other)
  Sender: FDA-Public Use
  Company Number: US-MYLANLABS-2011S1014543

PATIENT
  Age: 41 Year
  Sex: Male

DRUGS (10)
  1. KLONOPIN [Suspect]
  2. NICOTROL [Suspect]
  3. INDOCIN [Suspect]
  4. FLEXERIL [Suspect]
  5. XANAX [Suspect]
  6. AMITRIPTYLINE HCL [Suspect]
  7. VIAGRA [Suspect]
     Route: 048
  8. SOMA [Suspect]
  9. LIPITOR [Suspect]
     Route: 048
  10. AMBIEN [Suspect]

REACTIONS (3)
  - CONVULSION [None]
  - OESOPHAGEAL OPERATION [None]
  - ANKLE FRACTURE [None]
